FAERS Safety Report 12761459 (Version 1)
Quarter: 2016Q3

REPORT INFORMATION
  Report Type: Other
  Country: GB (occurrence: GB)
  Receive Date: 20160920
  Receipt Date: 20160920
  Transmission Date: 20161109
  Serious: Yes (Other)
  Sender: FDA-Public Use
  Company Number: GB-CLARIS PHARMASERVICES-1057468

PATIENT
  Age: 55 Year
  Sex: Male
  Weight: 66.7 kg

DRUGS (7)
  1. METHOTREXATE. [Concomitant]
     Active Substance: METHOTREXATE
  2. SALBUTAMOL [Concomitant]
     Active Substance: ALBUTEROL
  3. PARACETAMOL [Concomitant]
     Active Substance: ACETAMINOPHEN
  4. SALMETEROL [Concomitant]
     Active Substance: SALMETEROL
  5. METRONIDAZOLE. [Suspect]
     Active Substance: METRONIDAZOLE
     Indication: SKIN INFECTION
     Route: 048
     Dates: start: 20160812, end: 20160814
  6. TRAMADOL. [Concomitant]
     Active Substance: TRAMADOL
  7. BECOTIDE [Concomitant]
     Active Substance: BECLOMETHASONE DIPROPIONATE

REACTIONS (4)
  - Hallucination [Recovered/Resolved]
  - Tension headache [Recovered/Resolved]
  - Somnolence [Recovered/Resolved]
  - Nausea [Recovered/Resolved]

NARRATIVE: CASE EVENT DATE: 20160812
